FAERS Safety Report 12463061 (Version 1)
Quarter: 2016Q2

REPORT INFORMATION
  Report Type: Spontaneous
  Country: US (occurrence: US)
  Receive Date: 20160614
  Receipt Date: 20160614
  Transmission Date: 20160815
  Serious: No
  Sender: FDA-Public Use
  Company Number: US-JNJFOC-20160523332

PATIENT
  Age: 44 Year
  Sex: Female
  Weight: 98.43 kg

DRUGS (2)
  1. STELARA [Suspect]
     Active Substance: USTEKINUMAB
     Indication: PSORIASIS
     Route: 058
     Dates: start: 20160407
  2. STELARA [Suspect]
     Active Substance: USTEKINUMAB
     Indication: PSORIASIS
     Route: 058
     Dates: start: 20160509

REACTIONS (10)
  - Off label use [Unknown]
  - Paraesthesia [Unknown]
  - Muscular weakness [Unknown]
  - Peripheral swelling [Unknown]
  - Fatigue [Unknown]
  - Joint stiffness [Unknown]
  - Skin haemorrhage [Unknown]
  - Incorrect dose administered [Unknown]
  - Joint swelling [Unknown]
  - Skin disorder [Unknown]

NARRATIVE: CASE EVENT DATE: 20160407
